FAERS Safety Report 13441033 (Version 2)
Quarter: 2017Q2

REPORT INFORMATION
  Report Type: Spontaneous
  Country: US (occurrence: US)
  Receive Date: 20170413
  Receipt Date: 20170419
  Transmission Date: 20170830
  Serious: No
  Sender: FDA-Public Use
  Company Number: US-TEVA-751871USA

PATIENT
  Age: 88 Year
  Sex: Male
  Weight: 87.17 kg

DRUGS (19)
  1. CLOPIDOGREL [Concomitant]
     Active Substance: CLOPIDOGREL BISULFATE
  2. TYLENOL [Concomitant]
     Active Substance: ACETAMINOPHEN
     Indication: PAIN
  3. OMEGA FISH OIL [Concomitant]
     Active Substance: FISH OIL\OMEGA-3 FATTY ACIDS
     Indication: SUPPLEMENTATION THERAPY
  4. SCHIFF MOVE FREE [Concomitant]
     Active Substance: CHONDROITIN SULFATE A\GLUCOSAMINE
     Indication: ARTHROPATHY
  5. TRIAMCINOLONE [Concomitant]
     Active Substance: TRIAMCINOLONE
     Indication: PRURITUS
  6. MEMANTINE. [Concomitant]
     Active Substance: MEMANTINE
     Indication: DEMENTIA ALZHEIMER^S TYPE
  7. IPRATROPIUM [Concomitant]
     Active Substance: IPRATROPIUM
     Indication: RHINORRHOEA
  8. FELODIPINEEXTENDED-RELEASE TABLETS [Concomitant]
     Active Substance: FELODIPINE
     Indication: HYPERTENSION
  9. METFORMIN [Concomitant]
     Active Substance: METFORMIN HYDROCHLORIDE
     Indication: DIABETES MELLITUS
  10. FERROUS SULFATE. [Concomitant]
     Active Substance: FERROUS SULFATE
     Indication: ANAEMIA
  11. DONEPEZIL. [Concomitant]
     Active Substance: DONEPEZIL
     Indication: DEMENTIA ALZHEIMER^S TYPE
  12. LISINOPRIL. [Concomitant]
     Active Substance: LISINOPRIL
     Indication: HYPERTENSION
  13. VITAMIN B12 [Concomitant]
     Active Substance: CYANOCOBALAMIN
  14. PROAIR HFA [Suspect]
     Active Substance: ALBUTEROL SULFATE
     Indication: DYSPNOEA
     Dosage: 2 PUFFS 3 TO 4 TIMES A DAY
     Dates: start: 201609
  15. TAMSULOSIN [Concomitant]
     Active Substance: TAMSULOSIN
  16. COCONUT OIL MCT [Concomitant]
     Indication: SUPPLEMENTATION THERAPY
  17. LANTUS [Concomitant]
     Active Substance: INSULIN GLARGINE
     Indication: DIABETES MELLITUS
  18. PROAIR HFA [Suspect]
     Active Substance: ALBUTEROL SULFATE
     Indication: ASTHMA
  19. HYDRALAZINE [Concomitant]
     Active Substance: HYDRALAZINE HYDROCHLORIDE
     Indication: HYPERTENSION

REACTIONS (2)
  - Product physical issue [Unknown]
  - Drug ineffective [Unknown]
